FAERS Safety Report 16079122 (Version 2)
Quarter: 2019Q2

REPORT INFORMATION
  Report Type: Spontaneous
  Country: FI (occurrence: FI)
  Receive Date: 20190315
  Receipt Date: 20190525
  Transmission Date: 20190711
  Serious: Yes (Other)
  Sender: FDA-Public Use
  Company Number: PHHY2019FI025001

PATIENT
  Sex: Female

DRUGS (9)
  1. ZOLT [Concomitant]
     Indication: PRODUCT USED FOR UNKNOWN INDICATION
     Dosage: 30 MG, UNK(WHEN PAIN MEDICINE AND PREDNISOLON IN USE AT THE SAME TIME: 1 CAPSULE (30 MG) IF NEEDED,
     Route: 065
  2. SALAZOPYRIN EN-TABS. [Concomitant]
     Active Substance: SULFASALAZINE
     Indication: ANKYLOSING SPONDYLITIS
     Dosage: 2 DF, BID
     Route: 065
  3. COSENTYX [Suspect]
     Active Substance: SECUKINUMAB
     Indication: ANKYLOSING SPONDYLITIS
     Dosage: 150 MG, BID
     Route: 065
     Dates: start: 20180815
  4. COSENTYX [Suspect]
     Active Substance: SECUKINUMAB
     Dosage: 150 MG, BID
     Route: 065
     Dates: start: 20180921, end: 201811
  5. KALCIPOS-D [Concomitant]
     Active Substance: CALCIUM CARBONATE\CHOLECALCIFEROL
     Indication: ANKYLOSING SPONDYLITIS
     Dosage: 510/10 MG/UG, QD
     Route: 065
  6. BURANA [Concomitant]
     Active Substance: IBUPROFEN
     Indication: ANKYLOSING SPONDYLITIS
     Dosage: 1 DF, QD(1 TABLET (600 MG) IF NEEDED, MAXIMUM 1 TABLET PER DAY)
     Route: 065
  7. VITAMIN D [Concomitant]
     Active Substance: VITAMIN D NOS
     Indication: ANKYLOSING SPONDYLITIS
     Dosage: 50 UG, QD
  8. COSENTYX [Suspect]
     Active Substance: SECUKINUMAB
     Dosage: 150 MG, BID
     Route: 065
     Dates: start: 20180911
  9. ARAVA [Concomitant]
     Active Substance: LEFLUNOMIDE
     Indication: ANKYLOSING SPONDYLITIS
     Dosage: 20 MG, QD
     Route: 065
     Dates: start: 201801

REACTIONS (6)
  - Fixed eruption [Unknown]
  - Skin lesion [Recovering/Resolving]
  - Hypersensitivity vasculitis [Not Recovered/Not Resolved]
  - Psoriasis [Not Recovered/Not Resolved]
  - Rash macular [Recovering/Resolving]
  - Systemic lupus erythematosus [Unknown]

NARRATIVE: CASE EVENT DATE: 2018
